FAERS Safety Report 21504375 (Version 2)
Quarter: 2024Q2

REPORT INFORMATION
  Report Type: Report from Study
  Country: US (occurrence: US)
  Receive Date: 20221025
  Receipt Date: 20240405
  Transmission Date: 20240716
  Serious: No
  Sender: FDA-Public Use
  Company Number: US-ABBVIE-4165592

PATIENT
  Sex: Female

DRUGS (2)
  1. SKYRIZI [Suspect]
     Active Substance: RISANKIZUMAB-RZAA
     Indication: Psoriasis
     Route: 058
  2. Janssen COVID-19 vaccine (COVID-19 vaccine NRVV Ad26 (JNJ 78436735)) [Concomitant]
     Indication: COVID-19 immunisation
     Dosage: 1 IN ONCE
     Route: 030

REACTIONS (4)
  - Dizziness [Recovered/Resolved]
  - Psoriasis [Recovering/Resolving]
  - Headache [Recovered/Resolved]
  - Sinus disorder [Recovered/Resolved]
